FAERS Safety Report 12251967 (Version 2)
Quarter: 2016Q3

REPORT INFORMATION
  Report Type: Report from Study
  Country: CA (occurrence: CA)
  Receive Date: 20160411
  Receipt Date: 20160720
  Transmission Date: 20161109
  Serious: Yes (Hospitalization, Other)
  Sender: FDA-Public Use
  Company Number: CA-ROCHE-1635229

PATIENT
  Age: 64 Year
  Sex: Female

DRUGS (14)
  1. ACTEMRA [Suspect]
     Active Substance: TOCILIZUMAB
     Indication: RHEUMATOID ARTHRITIS
     Route: 058
     Dates: start: 20151001, end: 2016
  2. CICLESONIDE [Concomitant]
     Active Substance: CICLESONIDE
  3. PREVACID [Concomitant]
     Active Substance: LANSOPRAZOLE
  4. THIAMINE. [Concomitant]
     Active Substance: THIAMINE
  5. ACTEMRA [Suspect]
     Active Substance: TOCILIZUMAB
     Indication: RHEUMATOID ARTHRITIS
     Route: 042
     Dates: start: 20140424, end: 20150914
  6. PLAQUENIL [Concomitant]
     Active Substance: HYDROXYCHLOROQUINE SULFATE
  7. BENADRYL [Concomitant]
     Active Substance: DIPHENHYDRAMINE HYDROCHLORIDE
     Dosage: 50MG 1/2 TABS 30 MINUTES PRIOR TO INFUSION
     Route: 065
  8. FOSAMAX [Concomitant]
     Active Substance: ALENDRONATE SODIUM
  9. ATIVAN [Concomitant]
     Active Substance: LORAZEPAM
  10. SALBUTAMOL [Concomitant]
     Active Substance: ALBUTEROL
  11. DELTASONE (PREDNISONE) [Concomitant]
  12. ACETYLSALICYLIC ACID [Concomitant]
     Active Substance: ASPIRIN
  13. FLONASE [Concomitant]
     Active Substance: FLUTICASONE PROPIONATE
  14. TYLENOL [Concomitant]
     Active Substance: ACETAMINOPHEN

REACTIONS (9)
  - Drug ineffective [Unknown]
  - Myocardial infarction [Unknown]
  - Injection site urticaria [Unknown]
  - Coronary artery occlusion [Unknown]
  - Pancreatitis [Unknown]
  - Fibromyalgia [Unknown]
  - Synovitis [Unknown]
  - Drug effect decreased [Unknown]
  - Rheumatoid arthritis [Not Recovered/Not Resolved]

NARRATIVE: CASE EVENT DATE: 20151206
